FAERS Safety Report 4424406-X (Version None)
Quarter: 2004Q3

REPORT INFORMATION
  Report Type: 
  Country: None (occurrence: None)
  Receive Date: 20040812
  Receipt Date: 20040802
  Transmission Date: 20050211
  Serious: Yes (Death)
  Sender: FDA-Public Use
  Company Number: FR-JNJFOC-20040506536

PATIENT
  Sex: Male
  Weight: 94 kg

DRUGS (22)
  1. RISPERDAL [Suspect]
     Route: 049
  2. SEVREDOL [Concomitant]
     Indication: BONE PAIN
  3. ATHYMIL [Concomitant]
  4. LEXOMIL [Concomitant]
  5. NOCTRAN [Concomitant]
  6. NOCTRAN [Concomitant]
  7. NOCTRAN [Concomitant]
  8. GLUCOPHAGE [Concomitant]
  9. DIAMICRON [Concomitant]
  10. COZAAR [Concomitant]
  11. LOXEN [Concomitant]
  12. ACETAMINOPHEN [Concomitant]
  13. SULFARLEM [Concomitant]
  14. NIFLURIL [Concomitant]
  15. ASPIRIN [Concomitant]
  16. RHINOFLUIMUCIL [Concomitant]
     Route: 045
  17. RHINOFLUIMUCIL [Concomitant]
     Route: 045
  18. RHINOFLUIMUCIL [Concomitant]
     Route: 045
  19. COLD CREAM NATUREL [Concomitant]
  20. COLD CREAM NATUREL [Concomitant]
  21. COLD CREAM NATUREL [Concomitant]
  22. COLD CREAM NATUREL [Concomitant]

REACTIONS (2)
  - PYREXIA [None]
  - RESPIRATORY ARREST [None]
